FAERS Safety Report 5792041-7 (Version None)
Quarter: 2008Q2

REPORT INFORMATION
  Report Type: 
  Country: None (occurrence: None)
  Receive Date: 20080626
  Receipt Date: 20080618
  Transmission Date: 20081010
  Serious: Yes (Hospitalization)
  Sender: FDA-Public Use
  Company Number: PHHY2008JP11464

PATIENT
  Age: 82 Year
  Sex: Male

DRUGS (3)
  1. VALSARTAN [Suspect]
  2. AMLODIPINE BESYLATE [Suspect]
  3. BENIDIPINE HYDROCHLORIDE [Concomitant]

REACTIONS (1)
  - LUNG DISORDER [None]
